FAERS Safety Report 5907639-2 (Version None)
Quarter: 2008Q4

REPORT INFORMATION
  Report Type: 
  Country: None (occurrence: None)
  Receive Date: 20081002
  Receipt Date: 20081002
  Transmission Date: 20090506
  Serious: No
  Sender: FDA-Public Use
  Company Number: None

PATIENT
  Sex: Female
  Weight: 19.2779 kg

DRUGS (1)
  1. SINGULAIR [Suspect]
     Indication: HYPERSENSITIVITY
     Dosage: 4MG QD PO
     Route: 048
     Dates: start: 20080902, end: 20080908

REACTIONS (3)
  - AGGRESSION [None]
  - MOOD SWINGS [None]
  - SUICIDAL IDEATION [None]
